FAERS Safety Report 7771577-3 (Version None)
Quarter: 2011Q3

REPORT INFORMATION
  Report Type: 
  Country: None (occurrence: None)
  Receive Date: 20110922
  Receipt Date: 20110321
  Transmission Date: 20111222
  Serious: No
  Sender: FDA-Public Use
  Company Number: US-ASTRAZENECA-2011SE15957

PATIENT
  Age: 51 Year
  Sex: Female

DRUGS (2)
  1. SEROQUEL [Suspect]
     Indication: BIPOLAR DISORDER
     Route: 048
     Dates: start: 20060101, end: 20090101
  2. LAMICTAL [Concomitant]

REACTIONS (8)
  - BACK PAIN [None]
  - NERVE COMPRESSION [None]
  - SPINAL COLUMN STENOSIS [None]
  - DRUG DOSE OMISSION [None]
  - INTERVERTEBRAL DISC DEGENERATION [None]
  - INTERVERTEBRAL DISC PROTRUSION [None]
  - FIBROMYALGIA [None]
  - SCOLIOSIS [None]
